FAERS Safety Report 8070042-6 (Version None)
Quarter: 2012Q1

REPORT INFORMATION
  Report Type: 
  Country: None (occurrence: None)
  Receive Date: 20120125
  Receipt Date: 20120113
  Transmission Date: 20120608
  Serious: Yes (Hospitalization)
  Sender: FDA-Public Use
  Company Number: JP-ELI_LILLY_AND_COMPANY-JP201108004711

PATIENT
  Age: 75 Year
  Sex: Female

DRUGS (3)
  1. FORTEO [Suspect]
     Dosage: UNK, QD
     Route: 058
     Dates: start: 20111017
  2. TOCILIZUMAB [Concomitant]
     Indication: MUSCULOSKELETAL PAIN
     Dosage: UNK, WEEKLY (1/W)
     Route: 042
  3. FORTEO [Suspect]
     Indication: OSTEOPOROSIS
     Dosage: UNK UNK, QD
     Route: 058

REACTIONS (5)
  - COMPRESSION FRACTURE [None]
  - VOMITING [None]
  - DIARRHOEA [None]
  - INJECTION SITE HAEMATOMA [None]
  - ASTHENIA [None]
